FAERS Safety Report 4744384-3 (Version None)
Quarter: 2005Q3

REPORT INFORMATION
  Report Type: 
  Country: None (occurrence: None)
  Receive Date: 20050811
  Receipt Date: 20050811
  Transmission Date: 20060218
  Serious: Yes (Hospitalization)
  Sender: FDA-Public Use
  Company Number: None

PATIENT
  Age: 57 Year
  Sex: Male
  Weight: 107 kg

DRUGS (2)
  1. VANCOMYCIN [Suspect]
     Indication: OSTEOMYELITIS
     Dosage: 1 G IV Q 8 H
     Route: 042
     Dates: start: 20050630, end: 20050708
  2. PIPERACILLIN / TAZOBACTAM [Suspect]
     Indication: OSTEOMYELITIS
     Dosage: 3.375 G IV Q 6 H
     Route: 042
     Dates: start: 20050630, end: 20050709

REACTIONS (3)
  - BLOOD POTASSIUM INCREASED [None]
  - DRUG TOXICITY [None]
  - RENAL FAILURE ACUTE [None]
